FAERS Safety Report 6632227-2 (Version None)
Quarter: 2010Q1

REPORT INFORMATION
  Report Type: 
  Country: None (occurrence: None)
  Receive Date: 20100312
  Receipt Date: 20100304
  Transmission Date: 20100710
  Serious: Yes (Disabling, Other)
  Sender: FDA-Public Use
  Company Number: CA-BRISTOL-MYERS SQUIBB COMPANY-15012214

PATIENT
  Age: 41 Year
  Sex: Female
  Weight: 108 kg

DRUGS (9)
  1. REYATAZ [Suspect]
     Indication: HIV INFECTION
     Dates: start: 20060512
  2. RALTEGRAVIR [Suspect]
     Indication: HIV INFECTION
     Route: 048
     Dates: start: 20090514
  3. NORVIR [Suspect]
     Indication: HIV INFECTION
     Dates: start: 20060512
  4. VIREAD [Suspect]
     Indication: HIV INFECTION
     Dates: start: 20060512
  5. LAMIVUDINE [Suspect]
     Indication: HIV INFECTION
     Dates: start: 20060512
  6. TYLENOL-500 [Concomitant]
     Dosage: ALSO TAKEN ON MAR 2009-ONG
     Dates: start: 20010101
  7. ADVIL LIQUI-GELS [Concomitant]
     Dates: start: 20040619
  8. PALAFER [Concomitant]
     Dates: start: 20090221
  9. ZOMIG [Concomitant]
     Dates: start: 20081011

REACTIONS (1)
  - BREAST CANCER [None]
